FAERS Safety Report 7998011-2 (Version None)
Quarter: 2011Q4

REPORT INFORMATION
  Report Type: 
  Country: None (occurrence: None)
  Receive Date: 20111221
  Receipt Date: 20101111
  Transmission Date: 20120403
  Serious: No
  Sender: FDA-Public Use
  Company Number: US-GLAXOSMITHKLINE-A0892036A

PATIENT
  Age: 69 Year
  Sex: Female

DRUGS (14)
  1. CLARINEX [Concomitant]
  2. METFORMIN HCL [Concomitant]
  3. EXFORGE [Concomitant]
  4. LOVAZA [Suspect]
     Indication: BLOOD TRIGLYCERIDES INCREASED
     Dosage: 2CAP TWICE PER DAY
     Route: 048
     Dates: start: 20080101
  5. LIPITOR [Concomitant]
  6. COREG [Concomitant]
  7. VITAMIN D SUPPLEMENT [Concomitant]
  8. MAGNESIUM SUPPLEMENT [Concomitant]
  9. DIGOXIN [Concomitant]
  10. NEXIUM [Concomitant]
  11. TRILIPIX [Concomitant]
  12. CALCIUM SUPPLEMENT [Concomitant]
  13. APIDRA [Concomitant]
  14. LANTUS [Concomitant]

REACTIONS (2)
  - MEDICATION RESIDUE [None]
  - PRODUCT QUALITY ISSUE [None]
